FAERS Safety Report 10681743 (Version 1)
Quarter: 2014Q4

REPORT INFORMATION
  Report Type: Spontaneous
  Country: IT (occurrence: None)
  Receive Date: 20141224
  Receipt Date: 20141224
  Transmission Date: 20150529
  Serious: Yes (Hospitalization)
  Sender: FDA-Public Use
  Company Number: FK201406447

PATIENT
  Age: 67 Year
  Sex: Male

DRUGS (2)
  1. ZAVEDOS (IDARUBICIN HYDROCHLORIDE) [Suspect]
     Active Substance: IDARUBICIN
     Indication: MYELODYSPLASTIC SYNDROME
     Route: 042
     Dates: start: 20141107, end: 20141111
  2. CYTARABINE (MANUFACTURER UNKNOWN) (CYTARABINE) (CYTARABINE) [Suspect]
     Active Substance: CYTARABINE
     Indication: MYELODYSPLASTIC SYNDROME
     Route: 042
     Dates: start: 20141107, end: 20141113

REACTIONS (5)
  - Blood count abnormal [None]
  - Pseudomonas test positive [None]
  - Febrile neutropenia [None]
  - Respiratory tract infection [None]
  - Blood culture positive [None]

NARRATIVE: CASE EVENT DATE: 20141116
